FAERS Safety Report 6074303-1 (Version None)
Quarter: 2009Q1

REPORT INFORMATION
  Report Type: 
  Country: None (occurrence: None)
  Receive Date: 20090211
  Receipt Date: 20090130
  Transmission Date: 20090719
  Serious: Yes (Other)
  Sender: FDA-Public Use
  Company Number: US-ELI_LILLY_AND_COMPANY-US200811000758

PATIENT
  Sex: Female

DRUGS (10)
  1. CYMBALTA [Suspect]
     Indication: SUICIDAL IDEATION
     Dosage: 120 MG, DAILY (1/D)
     Dates: start: 20070101, end: 20081021
  2. CYMBALTA [Suspect]
     Dosage: 90 MG, DAILY (1/D)
     Dates: start: 20081022, end: 20081023
  3. CYMBALTA [Suspect]
     Dosage: 60 MG, DAILY (1/D)
     Dates: start: 20081024, end: 20081026
  4. CYMBALTA [Suspect]
     Dosage: 30 MG, DAILY (1/D)
     Dates: start: 20081027, end: 20081030
  5. PROVIGIL [Concomitant]
  6. INFLUENZA VACCINE [Concomitant]
     Dates: start: 20081001, end: 20081001
  7. NOVOLOG [Concomitant]
     Indication: DIABETES MELLITUS
  8. GLIMEPIRIDE [Concomitant]
     Indication: DIABETES MELLITUS
     Dosage: 4 MG, 2/D
  9. LANTUS [Concomitant]
     Indication: DIABETES MELLITUS
     Dosage: 16 U, EACH EVENING
     Route: 058
  10. LEVOXYL [Concomitant]
     Indication: HYPOTHYROIDISM
     Dosage: 125 UG, UNK

REACTIONS (9)
  - CONVULSION [None]
  - DRUG WITHDRAWAL SYNDROME [None]
  - DYSPNOEA [None]
  - HOT FLUSH [None]
  - INFLUENZA LIKE ILLNESS [None]
  - PULMONARY HYPERTENSION [None]
  - RESTLESSNESS [None]
  - SUICIDAL IDEATION [None]
  - TREMOR [None]
